FAERS Safety Report 11421954 (Version 1)
Quarter: 2015Q3

REPORT INFORMATION
  Report Type: Spontaneous
  Country: TH (occurrence: TH)
  Receive Date: 20150827
  Receipt Date: 20150827
  Transmission Date: 20151125
  Serious: Yes (Other)
  Sender: FDA-Public Use
  Company Number: TH-GILEAD-2015-0149753

PATIENT
  Age: 69 Year
  Sex: Male

DRUGS (10)
  1. DIAMICRON [Concomitant]
     Active Substance: GLICLAZIDE
     Route: 048
  2. LASIX [Concomitant]
     Active Substance: FUROSEMIDE
     Indication: DIURETIC THERAPY
     Dosage: 20 MG, QD
     Route: 048
  3. METFORMIN [Concomitant]
     Active Substance: METFORMIN HYDROCHLORIDE
     Dosage: 1000 MG, QD
     Route: 048
  4. AMBRISENTAN [Suspect]
     Active Substance: AMBRISENTAN
     Indication: LUNG DISORDER
     Dosage: 5 MG, UNK
     Route: 048
     Dates: start: 20150318, end: 20150408
  5. LIPITOR [Concomitant]
     Active Substance: ATORVASTATIN CALCIUM
     Dosage: 40 MG, QD
     Route: 048
  6. METFORMIN [Concomitant]
     Active Substance: METFORMIN HYDROCHLORIDE
     Dosage: 1000 MG, QD
     Route: 048
  7. BOSENTAN [Concomitant]
     Active Substance: BOSENTAN
     Indication: LUNG DISORDER
  8. ASPIRIN                            /00002701/ [Concomitant]
     Active Substance: ASPIRIN
     Dosage: 81 MG, QD
     Route: 048
  9. ACTOS [Concomitant]
     Active Substance: PIOGLITAZONE HYDROCHLORIDE
     Dosage: 15 MG, QD
     Route: 048
  10. COUMADIN [Concomitant]
     Active Substance: WARFARIN SODIUM
     Dosage: 1.5 MG, QD

REACTIONS (2)
  - Abasia [Unknown]
  - Oedema peripheral [Unknown]
